FAERS Safety Report 6220789-9 (Version None)
Quarter: 2009Q2

REPORT INFORMATION
  Report Type: 
  Country: None (occurrence: None)
  Receive Date: 20090610
  Receipt Date: 20090528
  Transmission Date: 20091009
  Serious: No
  Sender: FDA-Public Use
  Company Number: US-BAYER-200921948NA

PATIENT
  Age: 26 Year
  Sex: Female

DRUGS (1)
  1. MIRENA [Suspect]
     Indication: DRUG USE FOR UNKNOWN INDICATION
     Route: 015
     Dates: start: 20080101

REACTIONS (6)
  - BLOOD PROLACTIN INCREASED [None]
  - BREAST DISCHARGE [None]
  - DIZZINESS [None]
  - LETHARGY [None]
  - NAUSEA [None]
  - VOMITING [None]
